FAERS Safety Report 18769496 (Version 1)
Quarter: 2021Q1

REPORT INFORMATION
  Report Type: Report from Study
  Country: BR (occurrence: BR)
  Receive Date: 20210121
  Receipt Date: 20210121
  Transmission Date: 20210419
  Serious: Yes (Other)
  Sender: FDA-Public Use
  Company Number: BR-TAKEDA-BR202013085

PATIENT
  Sex: Male
  Weight: 16.5 kg

DRUGS (3)
  1. HEMO?8R [Suspect]
     Active Substance: ANTIHEMOPHILIC FACTOR, HUMAN RECOMBINANT
     Dosage: 500 INTERNATIONAL UNIT, TID
     Route: 042
     Dates: start: 20160112
  2. HEMO?8R [Suspect]
     Active Substance: ANTIHEMOPHILIC FACTOR, HUMAN RECOMBINANT
     Indication: FACTOR VIII DEFICIENCY
     Dosage: 500 INTERNATIONAL UNIT, 3/WEEK
     Route: 042
  3. HEMO?8R [Suspect]
     Active Substance: ANTIHEMOPHILIC FACTOR, HUMAN RECOMBINANT
     Dosage: 500 INTERNATIONAL UNIT,3/WEEK
     Route: 042
     Dates: start: 20200408

REACTIONS (6)
  - Tooth disorder [None]
  - Traumatic haemorrhage [Unknown]
  - Weight increased [Recovered/Resolved]
  - Haemarthrosis [Unknown]
  - Mouth haemorrhage [Recovered/Resolved]
  - Joint injury [Unknown]
